FAERS Safety Report 4680835-0 (Version None)
Quarter: 2005Q2

REPORT INFORMATION
  Report Type: 
  Country: None (occurrence: None)
  Receive Date: 20050603
  Receipt Date: 20050415
  Transmission Date: 20051028
  Serious: Yes (Other)
  Sender: FDA-Public Use
  Company Number: FR-ABBOTT-05P-056-0298041-00

PATIENT
  Age: 54 Year
  Sex: Female

DRUGS (5)
  1. ZECLAR [Suspect]
     Indication: INFLUENZA LIKE ILLNESS
     Route: 048
     Dates: start: 20040301
  2. LEVOTHYROXINE SODIUM [Concomitant]
     Indication: HYPOTHYROIDISM
     Dates: start: 19940101
  3. AMBROXOL [Concomitant]
     Indication: INFLUENZA LIKE ILLNESS
     Dosage: 2 SPOONS
     Route: 048
     Dates: start: 20040301
  4. HEXETIDINE [Concomitant]
     Indication: INFLUENZA LIKE ILLNESS
     Dosage: 2 SPRAYS
     Route: 048
     Dates: start: 20040301
  5. ORO-PIVALONE [Concomitant]
     Indication: INFLUENZA LIKE ILLNESS
     Route: 048
     Dates: start: 20040301

REACTIONS (6)
  - AGEUSIA [None]
  - ANOSMIA [None]
  - DYSGEUSIA [None]
  - INFLUENZA [None]
  - PAROSMIA [None]
  - RHINITIS [None]
